FAERS Safety Report 19323574 (Version 1)
Quarter: 2021Q2

REPORT INFORMATION
  Report Type: Spontaneous
  Country: JP (occurrence: JP)
  Receive Date: 20210528
  Receipt Date: 20210528
  Transmission Date: 20210717
  Serious: Yes (Death)
  Sender: FDA-Public Use
  Company Number: JP-ASTRAZENECA-2021A430275

PATIENT
  Sex: Female

DRUGS (1)
  1. BREZTRI [Suspect]
     Active Substance: BUDESONIDE\FORMOTEROL\GLYCOPYRRONIUM
     Dosage: DOSE UNKNOWN
     Route: 055
     Dates: start: 202101, end: 20210503

REACTIONS (1)
  - Leukaemia [Fatal]

NARRATIVE: CASE EVENT DATE: 20210503
